FAERS Safety Report 18781104 (Version 1)
Quarter: 2021Q1

REPORT INFORMATION
  Report Type: Spontaneous
  Country: US (occurrence: US)
  Receive Date: 20210124
  Receipt Date: 20210124
  Transmission Date: 20210419
  Serious: No
  Sender: FDA-Public Use
  Company Number: None

PATIENT
  Age: 21 Year
  Sex: Male
  Weight: 108 kg

DRUGS (1)
  1. DEXTROAMPHETAMINE 10MG TABLETS [Suspect]
     Active Substance: DEXTROAMPHETAMINE SULFATE

REACTIONS (3)
  - Tongue movement disturbance [None]
  - Trismus [None]
  - Product substitution issue [None]

NARRATIVE: CASE EVENT DATE: 20201201
